FAERS Safety Report 8975302 (Version 3)
Quarter: 2013Q1

REPORT INFORMATION
  Report Type: Spontaneous
  Country: US (occurrence: US)
  Receive Date: 20121219
  Receipt Date: 20130107
  Transmission Date: 20140127
  Serious: No
  Sender: FDA-Public Use
  Company Number: US-PFIZER INC-2012312098

PATIENT
  Age: 6 Year
  Sex: Female
  Weight: 34.47 kg

DRUGS (3)
  1. ZITHROMAX [Suspect]
     Indication: TOOTH DISORDER
     Dosage: UNK, 1X/DAY
     Route: 048
     Dates: start: 20121120, end: 20121124
  2. ZITHROMAX [Suspect]
     Dosage: UNK
  3. JUNIOR STRENGTH TYLENOL [Concomitant]
     Indication: HEADACHE
     Dosage: UNK, AS NEEDED

REACTIONS (9)
  - Wrong technique in drug usage process [Unknown]
  - Abdominal discomfort [Unknown]
  - Diarrhoea [Unknown]
  - Overdose [Unknown]
  - Local swelling [Unknown]
  - Pain in extremity [Unknown]
  - Pain in extremity [Unknown]
  - Gait disturbance [Unknown]
  - Pain [Unknown]
